FAERS Safety Report 17498030 (Version 2)
Quarter: 2020Q3

REPORT INFORMATION
  Report Type: Spontaneous
  Country: FR (occurrence: FR)
  Receive Date: 20200304
  Receipt Date: 20200826
  Transmission Date: 20201102
  Serious: Yes (Death, Other)
  Sender: FDA-Public Use
  Company Number: FR-MYLANLABS-2020M1023238

PATIENT
  Age: 78 Year
  Sex: Female
  Weight: 90 kg

DRUGS (6)
  1. PREDNISONE. [Suspect]
     Active Substance: PREDNISONE
     Indication: POLYARTHRITIS
     Dosage: 10MG/J PUIS 1MG/SEM ? PARTIR DU 09/7
     Route: 048
     Dates: start: 20190522, end: 201910
  2. HYDROCORTANCYL                     /00016201/ [Concomitant]
     Active Substance: PREDNISONE
     Indication: ARTHRALGIA
     Dosage: 0.5 DOSAGE FORM, QD
     Route: 014
     Dates: start: 20190926, end: 20190926
  3. SPECIAFOLDINE [Suspect]
     Active Substance: FOLIC ACID
     Indication: VITAMIN SUPPLEMENTATION
     Dosage: 15 MILLIGRAM, QW
     Route: 048
     Dates: start: 201907, end: 20191218
  4. OPDIVO [Suspect]
     Active Substance: NIVOLUMAB
     Indication: METASTATIC MALIGNANT MELANOMA
     Dosage: 480 MILLIGRAM, MONTHLY
     Route: 042
     Dates: start: 20190206
  5. IMETH                              /00113801/ [Suspect]
     Active Substance: METHOTREXATE
     Indication: POLYARTHRITIS
     Dosage: 15 MILLIGRAM, QW
     Route: 048
     Dates: start: 20190709, end: 20191218
  6. TRAMADOL. [Concomitant]
     Active Substance: TRAMADOL
     Indication: PAIN
     Dosage: INCONNUE
     Route: 048
     Dates: start: 20191023

REACTIONS (1)
  - Neoplasm progression [Fatal]

NARRATIVE: CASE EVENT DATE: 20191211
